FAERS Safety Report 25429744 (Version 1)
Quarter: 2025Q2

REPORT INFORMATION
  Report Type: Spontaneous
  Country: FR (occurrence: FR)
  Receive Date: 20250612
  Receipt Date: 20250612
  Transmission Date: 20250716
  Serious: Yes (Other)
  Sender: MYLAN
  Company Number: FR-BIOGARAN-B25000868

PATIENT
  Age: 73 Year
  Sex: Female

DRUGS (16)
  1. FENOFIBRATE [Suspect]
     Active Substance: FENOFIBRATE
     Indication: Hypercholesterolaemia
  2. FENOFIBRATE [Suspect]
     Active Substance: FENOFIBRATE
  3. FENOFIBRATE [Suspect]
     Active Substance: FENOFIBRATE
     Route: 048
  4. FENOFIBRATE [Suspect]
     Active Substance: FENOFIBRATE
     Route: 048
  5. FENOFIBRATE [Suspect]
     Active Substance: FENOFIBRATE
     Dosage: 1 DOSAGE FORM, QD (1 TABLET EVENING)
     Dates: start: 20240215, end: 202502
  6. FENOFIBRATE [Suspect]
     Active Substance: FENOFIBRATE
     Dosage: 1 DOSAGE FORM, QD (1 TABLET EVENING)
     Dates: start: 20240215, end: 202502
  7. FENOFIBRATE [Suspect]
     Active Substance: FENOFIBRATE
     Dosage: 1 DOSAGE FORM, QD (1 TABLET EVENING)
     Route: 048
     Dates: start: 20240215, end: 202502
  8. FENOFIBRATE [Suspect]
     Active Substance: FENOFIBRATE
     Dosage: 1 DOSAGE FORM, QD (1 TABLET EVENING)
     Route: 048
     Dates: start: 20240215, end: 202502
  9. DICLOFENAC [Concomitant]
     Active Substance: DICLOFENAC
     Indication: Product used for unknown indication
  10. DICLOFENAC [Concomitant]
     Active Substance: DICLOFENAC
     Route: 065
  11. DICLOFENAC [Concomitant]
     Active Substance: DICLOFENAC
     Route: 065
  12. DICLOFENAC [Concomitant]
     Active Substance: DICLOFENAC
  13. PAROXETINE [Concomitant]
     Active Substance: PAROXETINE
     Indication: Product used for unknown indication
     Dosage: 1 DOSAGE FORM, QD
     Dates: start: 20200111
  14. PAROXETINE [Concomitant]
     Active Substance: PAROXETINE
     Dosage: 1 DOSAGE FORM, QD
     Route: 048
     Dates: start: 20200111
  15. PAROXETINE [Concomitant]
     Active Substance: PAROXETINE
     Dosage: 1 DOSAGE FORM, QD
     Route: 048
     Dates: start: 20200111
  16. PAROXETINE [Concomitant]
     Active Substance: PAROXETINE
     Dosage: 1 DOSAGE FORM, QD
     Dates: start: 20200111

REACTIONS (2)
  - Tendon rupture [Recovered/Resolved with Sequelae]
  - Pain [Recovered/Resolved with Sequelae]

NARRATIVE: CASE EVENT DATE: 20241001
